FAERS Safety Report 8348701-7 (Version None)
Quarter: 2012Q2

REPORT INFORMATION
  Report Type: 
  Country: None (occurrence: None)
  Receive Date: 20120507
  Receipt Date: 20120424
  Transmission Date: 20120825
  Serious: Yes (Other)
  Sender: FDA-Public Use
  Company Number: 2012MA005416

PATIENT
  Age: 67 Year
  Sex: Female

DRUGS (9)
  1. ACETYLSALICYLIC ACID SRT [Concomitant]
  2. TOPICORTE [Concomitant]
  3. OMEPRAZOLE [Concomitant]
  4. HYDROCHLOROTHIAZIDE [Concomitant]
  5. EZETIMIBE [Concomitant]
  6. VITAMIN B COMPLEX CAP [Concomitant]
  7. LOSARTAN POTASSIUM [Concomitant]
  8. PRAVASTATIN [Concomitant]
  9. TRAMADOL HYDROCHLORIDE [Suspect]
     Indication: PAIN
     Dosage: 50 MG;QD;PO
     Route: 048
     Dates: start: 20120213, end: 20120214

REACTIONS (1)
  - EPILEPSY [None]
